FAERS Safety Report 6388545-9 (Version None)
Quarter: 2009Q4

REPORT INFORMATION
  Report Type: 
  Country: None (occurrence: None)
  Receive Date: 20091001
  Receipt Date: 20091001
  Transmission Date: 20100525
  Serious: No
  Sender: FDA-Public Use
  Company Number: None

PATIENT
  Age: 76 Year
  Sex: Male
  Weight: 95.2554 kg

DRUGS (1)
  1. LOTEMAX [Suspect]
     Indication: EYELID INFECTION
     Dosage: I DROP IN EACH EYE 3 TIMES A DAY OPHTHALMIC
     Route: 047
     Dates: start: 20090924, end: 20090924

REACTIONS (1)
  - DIZZINESS [None]
